FAERS Safety Report 10196718 (Version 1)
Quarter: 2014Q2

REPORT INFORMATION
  Report Type: Spontaneous
  Country: US (occurrence: None)
  Receive Date: 20140523
  Receipt Date: 20140523
  Transmission Date: 20141212
  Serious: Yes (Other)
  Sender: FDA-Public Use
  Company Number: None

PATIENT
  Age: 80 Year
  Sex: Female

DRUGS (8)
  1. OSPHENA [Suspect]
     Indication: GENITAL ATROPHY
     Route: 048
  2. ZOCOR [Concomitant]
  3. EXFORGE [Concomitant]
  4. MULTIVITAMIN [Concomitant]
  5. OSTEOMATRIX [Concomitant]
  6. METFORMIN [Concomitant]
  7. VITAMIN D [Concomitant]
  8. ATENOLOL [Concomitant]

REACTIONS (1)
  - Rash pruritic [None]
